FAERS Safety Report 20591564 (Version 1)
Quarter: 2022Q1

REPORT INFORMATION
  Report Type: Spontaneous
  Country: JP (occurrence: JP)
  Receive Date: 20220314
  Receipt Date: 20220314
  Transmission Date: 20220423
  Serious: Yes (Other)
  Sender: FDA-Public Use
  Company Number: JP-Atnahs Limited-ATNAHS20220304706

PATIENT
  Age: 8 Decade
  Sex: Female

DRUGS (1)
  1. BONVIVA [Suspect]
     Active Substance: IBANDRONATE SODIUM
     Indication: Osteoporosis
     Dosage: 100MG TABLETS
     Route: 048
     Dates: start: 20220226, end: 2022

REACTIONS (2)
  - Pain [Unknown]
  - Arthralgia [Unknown]

NARRATIVE: CASE EVENT DATE: 20220228
